FAERS Safety Report 18884532 (Version 1)
Quarter: 2021Q1

REPORT INFORMATION
  Report Type: Spontaneous
  Country: US (occurrence: US)
  Receive Date: 20210212
  Receipt Date: 20210212
  Transmission Date: 20210420
  Serious: No
  Sender: FDA-Public Use
  Company Number: US-SA-2021SA044559

PATIENT
  Age: 41 Year
  Sex: Female

DRUGS (1)
  1. DUPIXENT [Suspect]
     Active Substance: DUPILUMAB
     Indication: DERMATITIS ATOPIC

REACTIONS (7)
  - Tenderness [Unknown]
  - Pain [Unknown]
  - Sleep disorder [Unknown]
  - Thermal burn [Unknown]
  - Dermatitis atopic [Unknown]
  - Pruritus [Unknown]
  - Skin discomfort [Unknown]
